FAERS Safety Report 8821300 (Version 5)
Quarter: 2012Q4

REPORT INFORMATION
  Report Type: 
  Country: US (occurrence: US)
  Receive Date: 20121002
  Receipt Date: 20121121
  Transmission Date: 20130627
  Serious: Yes (Hospitalization)
  Sender: FDA-Public Use
  Company Number: US-VERTEX PHARMACEUTICAL INC.-2012-021891

PATIENT
  Age: 60 Year
  Sex: Male
  Weight: 132 kg

DRUGS (3)
  1. VX-950 (TELAPREVIR) [Suspect]
     Indication: HEPATITIS C
     Dosage: 750 mg, tid
     Route: 048
     Dates: start: 20120830
  2. PEGASYS [Concomitant]
     Indication: HEPATITIS C
     Dosage: 180 ?g, qw
     Route: 058
     Dates: start: 20120830
  3. RIBASPHERE [Concomitant]
     Indication: HEPATITIS C
     Dosage: 600 mg, bid
     Route: 048
     Dates: start: 20120820

REACTIONS (11)
  - Gastrointestinal disorder [Unknown]
  - Melaena [Unknown]
  - Haematemesis [Unknown]
  - Decreased appetite [Unknown]
  - Oesophageal infection [Unknown]
  - Gastrooesophageal reflux disease [Unknown]
  - Fatigue [Unknown]
  - Anorectal discomfort [Unknown]
  - Anal pruritus [Unknown]
  - Nausea [Unknown]
  - Vomiting [Unknown]
